FAERS Safety Report 25588609 (Version 2)
Quarter: 2025Q3

REPORT INFORMATION
  Report Type: Report from Study
  Country: US (occurrence: US)
  Receive Date: 20250722
  Receipt Date: 20250805
  Transmission Date: 20251020
  Serious: Yes (Death)
  Sender: ROCHE
  Company Number: US-ROCHE-10000340747

PATIENT

DRUGS (2)
  1. EMICIZUMAB [Suspect]
     Active Substance: EMICIZUMAB
     Indication: Factor VIII deficiency
     Route: 042
  2. EMICIZUMAB [Suspect]
     Active Substance: EMICIZUMAB
     Indication: Von Willebrand^s disease

REACTIONS (11)
  - Haemorrhage intracranial [Fatal]
  - Deep vein thrombosis [Unknown]
  - Arthralgia [Unknown]
  - Headache [Unknown]
  - Myalgia [Unknown]
  - Diarrhoea [Unknown]
  - Pyrexia [Unknown]
  - Contusion [Unknown]
  - Fatigue [Unknown]
  - Nausea [Unknown]
  - Panic attack [Unknown]
